FAERS Safety Report 7110299-9 (Version None)
Quarter: 2010Q4

REPORT INFORMATION
  Report Type: 
  Country: None (occurrence: None)
  Receive Date: 20101112
  Receipt Date: 20101027
  Transmission Date: 20110411
  Serious: Yes (Hospitalization)
  Sender: FDA-Public Use
  Company Number: 1-17244035

PATIENT
  Age: 60 Year
  Sex: Male
  Weight: 97.5234 kg

DRUGS (5)
  1. QUININE SULFATE [Suspect]
     Indication: MUSCLE SPASMS
     Dosage: 1 CAPSULE QHS, AS NEEDED, ORAL
     Route: 048
     Dates: start: 20010813, end: 20060101
  2. GLUCOPHAGE [Concomitant]
  3. GLUCOTROL [Concomitant]
  4. ATIVAN [Concomitant]
  5. CELEBREX [Concomitant]

REACTIONS (12)
  - ARTERIAL OCCLUSIVE DISEASE [None]
  - ARTERIAL STENOSIS [None]
  - ARTERIOSCLEROSIS [None]
  - CHRONIC OBSTRUCTIVE PULMONARY DISEASE [None]
  - CORONARY ARTERY DISEASE [None]
  - DRUG HYPERSENSITIVITY [None]
  - GASTROINTESTINAL DISORDER [None]
  - GASTROINTESTINAL HAEMORRHAGE [None]
  - PAIN [None]
  - SMALL INTESTINAL HAEMORRHAGE [None]
  - THROMBOCYTOPENIA [None]
  - UNEVALUABLE EVENT [None]
